FAERS Safety Report 7732768-0 (Version None)
Quarter: 2011Q3

REPORT INFORMATION
  Report Type: 
  Country: None (occurrence: None)
  Receive Date: 20110819
  Receipt Date: 20110812
  Transmission Date: 20111222
  Serious: Yes (Hospitalization, Other)
  Sender: FDA-Public Use
  Company Number: 2011029518

PATIENT
  Age: 68 Year
  Sex: Female

DRUGS (5)
  1. INSULIN (INSULIN) [Concomitant]
  2. VIVAGLOBIN [Suspect]
     Indication: HYPOGAMMAGLOBULINAEMIA
     Dosage: 20 ML 1X/WEEK SUBCUTANEOUS
     Route: 058
     Dates: start: 20110207, end: 20110401
  3. PLAVIX [Concomitant]
  4. ISOPTIN [Concomitant]
  5. CRESTOR [Concomitant]

REACTIONS (4)
  - MYOCARDIAL INFARCTION [None]
  - ESCHERICHIA SEPSIS [None]
  - SEPTIC SHOCK [None]
  - URINARY TRACT INFECTION [None]
